FAERS Safety Report 8188052-7 (Version None)
Quarter: 2012Q1

REPORT INFORMATION
  Report Type: 
  Country: None (occurrence: None)
  Receive Date: 20120306
  Receipt Date: 20120228
  Transmission Date: 20120608
  Serious: No
  Sender: FDA-Public Use
  Company Number: US-PFIZER INC-2012047437

PATIENT
  Sex: Female
  Weight: 60.317 kg

DRUGS (2)
  1. ZITHROMAX [Suspect]
     Indication: VIRAL INFECTION
     Dosage: 250 MG, 2X/DAY
     Route: 048
     Dates: start: 20120217
  2. ZITHROMAX [Suspect]
     Indication: NASOPHARYNGITIS
     Dosage: 250 MG, 1X/DAY
     Route: 048
     Dates: end: 20120218

REACTIONS (14)
  - PRURITUS [None]
  - EYE SWELLING [None]
  - SWELLING [None]
  - MALAISE [None]
  - CHROMATURIA [None]
  - RASH [None]
  - OEDEMA PERIPHERAL [None]
  - ABDOMINAL DISCOMFORT [None]
  - ABDOMINAL PAIN [None]
  - PYREXIA [None]
  - NAUSEA [None]
  - DIARRHOEA [None]
  - SKIN DISCOLOURATION [None]
  - ABDOMINAL PAIN UPPER [None]
